FAERS Safety Report 23049925 (Version 1)
Quarter: 2023Q4

REPORT INFORMATION
  Report Type: Spontaneous
  Country: GB (occurrence: GB)
  Receive Date: 20231010
  Receipt Date: 20231010
  Transmission Date: 20240109
  Serious: Yes (Other)
  Sender: FDA-Public Use
  Company Number: None

PATIENT
  Age: 62 Year

DRUGS (1)
  1. ALENDRONATE SODIUM [Suspect]
     Active Substance: ALENDRONATE SODIUM
     Indication: Osteoporosis
     Dosage: 70 MG ONCE A WEEK
     Dates: start: 2011, end: 20231006

REACTIONS (1)
  - Lower limb fracture [Recovered/Resolved with Sequelae]

NARRATIVE: CASE EVENT DATE: 20231003
